FAERS Safety Report 8046831-0 (Version None)
Quarter: 2012Q1

REPORT INFORMATION
  Report Type: 
  Country: None (occurrence: None)
  Receive Date: 20120116
  Receipt Date: 20111228
  Transmission Date: 20120608
  Serious: No
  Sender: FDA-Public Use
  Company Number: US-BIOGENIDEC-2011BI048999

PATIENT
  Sex: Male

DRUGS (1)
  1. AVONEX [Suspect]
     Indication: MULTIPLE SCLEROSIS
     Route: 030
     Dates: start: 20091103, end: 20111201

REACTIONS (4)
  - MEMORY IMPAIRMENT [None]
  - DIZZINESS [None]
  - DYSPNOEA [None]
  - LIGAMENT SPRAIN [None]
